FAERS Safety Report 4313159-1 (Version None)
Quarter: 2004Q1

REPORT INFORMATION
  Report Type: 
  Country: None (occurrence: None)
  Receive Date: 20040304
  Receipt Date: 20040217
  Transmission Date: 20041129
  Serious: Yes (Hospitalization)
  Sender: FDA-Public Use
  Company Number: 204750

PATIENT
  Age: 19 Year
  Sex: Female
  Weight: 83.4 kg

DRUGS (5)
  1. XOLAIR [Suspect]
     Indication: ASTHMA
     Dosage: 150 MG, Q4W, SUBCUTANEOUS
     Route: 058
     Dates: start: 20030923
  2. SINGULAIR [Concomitant]
  3. FLONASE [Concomitant]
  4. ZYRTEC [Concomitant]
  5. ZANTAC [Concomitant]

REACTIONS (2)
  - ASTHMA [None]
  - FOOD ALLERGY [None]
